FAERS Safety Report 5377074-7 (Version None)
Quarter: 2007Q2

REPORT INFORMATION
  Report Type: 
  Country: None (occurrence: None)
  Receive Date: 20070530
  Receipt Date: 20070215
  Transmission Date: 20071010
  Serious: No
  Sender: FDA-Public Use
  Company Number: 2007PV030179

PATIENT
  Age: 67 Year
  Sex: Female

DRUGS (4)
  1. BYETTA [Suspect]
     Indication: DIABETES MELLITUS NON-INSULIN-DEPENDENT
     Dosage: 10 MCG;BID;SC; 10 MCG;QD;SC; 5 MCG;BID;SC; 5 MCG;QD;SC
     Route: 058
     Dates: start: 20060601, end: 20060801
  2. BYETTA [Suspect]
     Indication: DIABETES MELLITUS NON-INSULIN-DEPENDENT
     Dosage: 10 MCG;BID;SC; 10 MCG;QD;SC; 5 MCG;BID;SC; 5 MCG;QD;SC
     Route: 058
     Dates: start: 20060801, end: 20070108
  3. BYETTA [Suspect]
     Indication: DIABETES MELLITUS NON-INSULIN-DEPENDENT
     Dosage: 10 MCG;BID;SC; 10 MCG;QD;SC; 5 MCG;BID;SC; 5 MCG;QD;SC
     Route: 058
     Dates: start: 20070109, end: 20070130
  4. BYETTA [Suspect]
     Indication: DIABETES MELLITUS NON-INSULIN-DEPENDENT
     Dosage: 10 MCG;BID;SC; 10 MCG;QD;SC; 5 MCG;BID;SC; 5 MCG;QD;SC
     Route: 058
     Dates: start: 20070131

REACTIONS (1)
  - VISUAL ACUITY REDUCED [None]
